FAERS Safety Report 5908289-4 (Version None)
Quarter: 2008Q3

REPORT INFORMATION
  Report Type: 
  Country: None (occurrence: None)
  Receive Date: 20080930
  Receipt Date: 20080917
  Transmission Date: 20090109
  Serious: Yes (Hospitalization)
  Sender: FDA-Public Use
  Company Number: 231601J07USA

PATIENT
  Age: 63 Year
  Sex: Female
  Weight: 61.7 kg

DRUGS (7)
  1. REBIF [Suspect]
     Indication: MULTIPLE SCLEROSIS
     Dosage: 44 MCG, 3 IN 1 WEEK, SUBCUTANEOUS; 44 MCG, 3 IN 1 2 WEEKS, SUBCUTANEOUS
     Route: 058
     Dates: start: 20060904, end: 20071015
  2. REBIF [Suspect]
     Indication: MULTIPLE SCLEROSIS
     Dosage: 44 MCG, 3 IN 1 WEEK, SUBCUTANEOUS; 44 MCG, 3 IN 1 2 WEEKS, SUBCUTANEOUS
     Route: 058
     Dates: start: 20080101
  3. LEVOTHYROINE (LEVOTHYROXINE /00068001/) [Concomitant]
  4. ZOCOR [Concomitant]
  5. ASPIRIN [Concomitant]
  6. CALCIUM (CALCIUM-SANDOZ) [Concomitant]
  7. LEXAPRO [Concomitant]

REACTIONS (5)
  - BACK PAIN [None]
  - CYST [None]
  - INJECTION SITE MASS [None]
  - LACUNAR INFARCTION [None]
  - MUSCLE SPASMS [None]
